FAERS Safety Report 16408894 (Version 1)
Quarter: 2019Q2

REPORT INFORMATION
  Report Type: Spontaneous
  Country: US (occurrence: US)
  Receive Date: 20190502
  Receipt Date: 20190502
  Transmission Date: 20190711
  Serious: Yes (Hospitalization)
  Sender: FDA-Public Use
  Company Number: None

PATIENT
  Age: 30 Year
  Sex: Male

DRUGS (1)
  1. MESNEX [Suspect]
     Active Substance: MESNA
     Indication: MALIGNANT MEDIASTINAL NEOPLASM
     Route: 048
     Dates: start: 20190418

REACTIONS (1)
  - White blood cell count abnormal [None]
